FAERS Safety Report 11705477 (Version 2)
Quarter: 2015Q4

REPORT INFORMATION
  Report Type: Spontaneous
  Country: US (occurrence: US)
  Receive Date: 20151106
  Receipt Date: 20151116
  Transmission Date: 20160304
  Serious: Yes (Other)
  Sender: FDA-Public Use
  Company Number: US-ACTAVIS-2015-23599

PATIENT
  Age: 19 Year
  Sex: Female

DRUGS (2)
  1. BACLOFEN (WATSON LABORATORIES) [Suspect]
     Active Substance: BACLOFEN
     Dosage: UNK
     Route: 048
  2. BACLOFEN (WATSON LABORATORIES) [Suspect]
     Active Substance: BACLOFEN
     Indication: CEREBRAL PALSY
     Dosage: 20 MG, TID
     Route: 048

REACTIONS (1)
  - Respiration abnormal [Recovered/Resolved]
